FAERS Safety Report 7884548-3 (Version None)
Quarter: 2011Q4

REPORT INFORMATION
  Report Type: 
  Country: None (occurrence: None)
  Receive Date: 20111102
  Receipt Date: 20111027
  Transmission Date: 20120403
  Serious: Yes (Other)
  Sender: FDA-Public Use
  Company Number: US-PFIZER INC-2011263127

PATIENT
  Sex: Female
  Weight: 58.957 kg

DRUGS (2)
  1. PROPRANOLOL [Concomitant]
     Indication: HYPERTENSION
     Dosage: 80 MG, DAILY
  2. RELPAX [Suspect]
     Indication: MIGRAINE
     Dosage: 40 MG, UNK
     Route: 048
     Dates: start: 20111027

REACTIONS (1)
  - PHARYNGEAL OEDEMA [None]
